FAERS Safety Report 13390495 (Version 2)
Quarter: 2017Q2

REPORT INFORMATION
  Report Type: Spontaneous
  Country: US (occurrence: US)
  Receive Date: 20170331
  Receipt Date: 20170629
  Transmission Date: 20170830
  Serious: Yes (Hospitalization)
  Sender: FDA-Public Use
  Company Number: US-PFIZER INC-2017132027

PATIENT
  Age: 68 Year
  Sex: Female
  Weight: 54 kg

DRUGS (7)
  1. EXEMESTANE. [Suspect]
     Active Substance: EXEMESTANE
     Indication: LOBULAR BREAST CARCINOMA IN SITU
     Dosage: 25 MG, DAILY
     Route: 048
     Dates: start: 201609
  2. METHIMAZOLE. [Concomitant]
     Active Substance: METHIMAZOLE
     Indication: HYPERTHYROIDISM
     Dosage: 5 MG, 2X/WEEK
     Dates: start: 201410, end: 20170518
  3. CALCIUM [Concomitant]
     Active Substance: CALCIUM
     Dosage: 500 MG, DAILY
  4. BIOTIN [Concomitant]
     Active Substance: BIOTIN
     Dosage: 5000 UG, DAILY
  5. VITAMIN D [Concomitant]
     Active Substance: CHOLECALCIFEROL
     Dosage: 2000 MG, 1X/DAY
  6. VITAMIN B12 [Concomitant]
     Active Substance: CYANOCOBALAMIN
     Dosage: 1000 MG, 2X/WEEK
  7. AROMASIN [Suspect]
     Active Substance: EXEMESTANE
     Indication: LOBULAR BREAST CARCINOMA IN SITU
     Dosage: 25 MG, DAILY
     Route: 048
     Dates: start: 20160909

REACTIONS (6)
  - Visual acuity reduced [Not Recovered/Not Resolved]
  - Condition aggravated [Not Recovered/Not Resolved]
  - Vision blurred [Not Recovered/Not Resolved]
  - Abdominal pain [Recovered/Resolved]
  - Alopecia [Not Recovered/Not Resolved]
  - Diarrhoea [Recovered/Resolved]
